FAERS Safety Report 4883486-8 (Version None)
Quarter: 2006Q1

REPORT INFORMATION
  Report Type: 
  Country: None (occurrence: None)
  Receive Date: 20060118
  Receipt Date: 20051223
  Transmission Date: 20060701
  Serious: Yes (Hospitalization, Other)
  Sender: FDA-Public Use
  Company Number: US-MERCK-0512USA03839

PATIENT
  Age: 61 Year
  Sex: Male

DRUGS (12)
  1. ZOCOR [Suspect]
     Route: 048
     Dates: end: 20030101
  2. ZOCOR [Suspect]
     Route: 048
     Dates: end: 20050328
  3. CYCLOSPORINE [Suspect]
     Route: 065
  4. HYDRALAZINE [Concomitant]
     Route: 065
  5. ALLOPURINOL [Concomitant]
     Route: 065
  6. MAGNESIUM CHLORIDE [Concomitant]
     Route: 065
  7. ASPIRIN [Concomitant]
     Route: 065
  8. CELLCEPT [Concomitant]
     Route: 065
  9. TERAZOSIN HYDROCHLORIDE [Concomitant]
     Route: 065
  10. LISINOPRIL [Concomitant]
     Route: 065
  11. TOPROL-XL [Concomitant]
     Route: 065
  12. PREDNISONE [Concomitant]
     Route: 065

REACTIONS (28)
  - ANAEMIA [None]
  - ANAEMIA OF CHRONIC DISEASE [None]
  - ARTHRALGIA [None]
  - ASTHENIA [None]
  - BACK PAIN [None]
  - BURSITIS [None]
  - CAROTID ARTERY STENOSIS [None]
  - CELLULITIS [None]
  - DIZZINESS [None]
  - FATIGUE [None]
  - FLUID OVERLOAD [None]
  - GALLBLADDER POLYP [None]
  - GOUT [None]
  - GOUTY TOPHUS [None]
  - HYDRONEPHROSIS [None]
  - HYPERTENSION [None]
  - INCREASED TENDENCY TO BRUISE [None]
  - JOINT SPRAIN [None]
  - JOINT STIFFNESS [None]
  - MALAISE [None]
  - METABOLIC ACIDOSIS [None]
  - OEDEMA PERIPHERAL [None]
  - RENAL FAILURE ACUTE [None]
  - RHABDOMYOLYSIS [None]
  - SEBACEOUS ADENOMA [None]
  - SEXUAL DYSFUNCTION [None]
  - SINUSITIS [None]
  - TRIGGER FINGER [None]
